FAERS Safety Report 6795095-4 (Version None)
Quarter: 2010Q2

REPORT INFORMATION
  Report Type: 
  Country: None (occurrence: None)
  Receive Date: 20100625
  Receipt Date: 20100622
  Transmission Date: 20101027
  Serious: Yes (Death, Hospitalization)
  Sender: FDA-Public Use
  Company Number: PHHY2010MX25383

PATIENT
  Sex: Female

DRUGS (1)
  1. FEMARA [Suspect]
     Indication: METASTASES TO BONE
     Dosage: 1 TABLET (2.5 MG) DAILY
     Route: 048
     Dates: start: 20050501

REACTIONS (1)
  - MALIGNANT NEOPLASM PROGRESSION [None]
